FAERS Safety Report 12549596 (Version 1)
Quarter: 2016Q3

REPORT INFORMATION
  Report Type: Spontaneous
  Country: US (occurrence: US)
  Receive Date: 20160712
  Receipt Date: 20160712
  Transmission Date: 20161109
  Serious: No
  Sender: FDA-Public Use
  Company Number: US-PFIZER INC-2015266226

PATIENT
  Age: 47 Year
  Sex: Female

DRUGS (3)
  1. ENBREL [Suspect]
     Active Substance: ETANERCEPT
     Indication: REITER^S SYNDROME
     Dosage: 50 MG, WEEKLY
     Dates: start: 20140804
  2. METHOTREXATE SODIUM. [Suspect]
     Active Substance: METHOTREXATE SODIUM
     Dosage: UNK
  3. MELOXICAM. [Concomitant]
     Active Substance: MELOXICAM
     Dosage: UNK

REACTIONS (11)
  - Disease recurrence [Unknown]
  - Product use issue [Unknown]
  - Fibromyalgia [Unknown]
  - Colitis [Unknown]
  - Arthritis [Unknown]
  - Condition aggravated [Unknown]
  - Drug intolerance [Unknown]
  - Injection site extravasation [Unknown]
  - Malaise [Unknown]
  - Amnesia [Unknown]
  - Gastrooesophageal reflux disease [Unknown]
